FAERS Safety Report 18689167 (Version 1)
Quarter: 2020Q4

REPORT INFORMATION
  Report Type: Spontaneous
  Country: IN (occurrence: IN)
  Receive Date: 20201231
  Receipt Date: 20201231
  Transmission Date: 20210114
  Serious: No
  Sender: FDA-Public Use
  Company Number: IN-LUPIN PHARMACEUTICALS INC.-2020-08412

PATIENT
  Age: 54 Year
  Sex: Female

DRUGS (2)
  1. IMIPRAMINE PAMOATE. [Suspect]
     Active Substance: IMIPRAMINE PAMOATE
     Indication: DEPRESSION
     Dosage: 225 MILLIGRAM
     Route: 065
     Dates: start: 2001
  2. AMLONG-A [Concomitant]
     Indication: HYPERTENSION
     Dosage: UNK (AMLODIPINE BESY-LATE 5 MG + ATENOLOL 50 MG)
     Route: 065

REACTIONS (1)
  - Skin hyperpigmentation [Recovered/Resolved]
